FAERS Safety Report 8833221 (Version 1)
Quarter: 2012Q4

REPORT INFORMATION
  Report Type: 
  Country: US (occurrence: US)
  Receive Date: 20121010
  Receipt Date: 20121010
  Transmission Date: 20130627
  Serious: Yes (Other)
  Sender: FDA-Public Use
  Company Number: US-TEVA-363095USA

PATIENT
  Age: 58 Year
  Sex: Male
  Weight: 59.02 kg

DRUGS (8)
  1. PROAIR HFA [Suspect]
     Indication: WHEEZING
     Dosage: 1 PUFF
     Dates: start: 20121003
  2. ATENOLOL [Concomitant]
     Indication: HYPERTENSION
     Dosage: 50 Milligram Daily;
  3. LISINOPRIL [Concomitant]
     Indication: HYPERTENSION
     Dosage: 40 Milligram Daily;
  4. GABAPENTIN [Concomitant]
     Indication: NEUROPATHY PERIPHERAL
     Dosage: 1200 Milligram Daily;
  5. TRAMADOL [Concomitant]
     Indication: NEUROPATHY PERIPHERAL
     Dosage: 2400 Milligram Daily;
  6. LYRICA [Concomitant]
     Indication: NEUROPATHY PERIPHERAL
     Dosage: 400 Milligram Daily;
  7. ALPRAZOLAM [Concomitant]
     Indication: ANXIETY
     Dosage: 2 Milligram Daily;
  8. ASPIRIN [Concomitant]
     Indication: THROMBOSIS
     Dosage: 81 Milligram Daily;

REACTIONS (4)
  - Loss of consciousness [Recovered/Resolved]
  - Epistaxis [Recovered/Resolved]
  - Fall [Recovered/Resolved]
  - Dizziness [Recovered/Resolved]
